FAERS Safety Report 10501890 (Version 1)
Quarter: 2014Q4

REPORT INFORMATION
  Report Type: Spontaneous
  Country: JP (occurrence: JP)
  Receive Date: 20141007
  Receipt Date: 20141007
  Transmission Date: 20150528
  Serious: Yes (Other)
  Sender: FDA-Public Use
  Company Number: JP-ASTELLAS-2014US014056

PATIENT
  Age: 2 Year
  Sex: Male

DRUGS (1)
  1. AMPHOTERICIN B, LIPOSOME [Suspect]
     Active Substance: AMPHOTERICIN B
     Indication: BRONCHOPULMONARY ASPERGILLOSIS
     Route: 041

REACTIONS (1)
  - Nephrogenic diabetes insipidus [Recovered/Resolved]

NARRATIVE: CASE EVENT DATE: 20140510
